FAERS Safety Report 10755986 (Version 1)
Quarter: 2015Q1

REPORT INFORMATION
  Report Type: Report from Study
  Country: US (occurrence: US)
  Receive Date: 20150202
  Receipt Date: 20150202
  Transmission Date: 20150721
  Serious: Yes (Life-Threatening, Hospitalization)
  Sender: FDA-Public Use
  Company Number: US-MYLANLABS-2014SP002845

PATIENT

DRUGS (18)
  1. INSULIN [Concomitant]
     Active Substance: INSULIN NOS
     Indication: HYPERGLYCAEMIA
     Dosage: UNK
     Route: 058
     Dates: start: 20140420
  2. ACETAMINOPHEN. [Concomitant]
     Active Substance: ACETAMINOPHEN
     Indication: PYREXIA
     Route: 042
     Dates: start: 20140506
  3. MORPHINE [Concomitant]
     Active Substance: MORPHINE
     Indication: PAIN
     Route: 042
     Dates: start: 20140425, end: 20140504
  4. CEFEPIME [Concomitant]
     Active Substance: CEFEPIME\CEFEPIME HYDROCHLORIDE
     Indication: PHARYNGITIS
     Route: 042
     Dates: start: 20140425, end: 20140503
  5. CHLORHEXIDINE GLUCONATE. [Concomitant]
     Active Substance: CHLORHEXIDINE GLUCONATE
     Indication: TOOTHACHE
     Dosage: 12 ML, BID
     Dates: start: 20140504
  6. PIPERACILLIN AND TAZOBACTAM [Concomitant]
     Active Substance: PIPERACILLIN SODIUM\TAZOBACTAM SODIUM
     Indication: TOOTH INFECTION
     Dosage: UNK
     Route: 042
     Dates: start: 20140503
  7. VANCOMYCIN [Concomitant]
     Active Substance: VANCOMYCIN
     Indication: TOOTH INFECTION
     Route: 042
     Dates: start: 20140508
  8. ALL OTHER THERAPEUTIC PRODUCTS [Concomitant]
     Active Substance: UNSPECIFIED INGREDIENT
     Indication: MUCOSAL INFLAMMATION
     Dates: start: 20140424, end: 20140503
  9. POTASSIUM CHLORIDE. [Concomitant]
     Active Substance: POTASSIUM CHLORIDE
     Indication: HYPOKALAEMIA
     Dosage: UNK
     Route: 042
     Dates: start: 20140507
  10. ACYCLOVIR                          /00587301/ [Concomitant]
     Active Substance: ACYCLOVIR
     Indication: PROPHYLAXIS
     Dosage: 800 MG, BID
     Route: 048
     Dates: start: 20140421
  11. PREDNISONE. [Concomitant]
     Active Substance: PREDNISONE
     Indication: RESPIRATORY TRACT OEDEMA
     Route: 048
     Dates: start: 20140427, end: 20140507
  12. CYTARABINE. [Suspect]
     Active Substance: CYTARABINE
     Indication: ACUTE LYMPHOCYTIC LEUKAEMIA
     Dosage: 1.5 G, BID
     Route: 042
     Dates: start: 20140418, end: 20140423
  13. LORAZEPAM. [Concomitant]
     Active Substance: LORAZEPAM
     Route: 042
     Dates: start: 20140406, end: 20140503
  14. LORAZEPAM. [Concomitant]
     Active Substance: LORAZEPAM
     Indication: NAUSEA
  15. LORAZEPAM. [Concomitant]
     Active Substance: LORAZEPAM
     Indication: VOMITING
  16. HYDROMORPHONE HYDROCHLORIDE. [Concomitant]
     Active Substance: HYDROMORPHONE HYDROCHLORIDE
     Indication: TOOTHACHE
     Dosage: UNK
     Route: 042
     Dates: start: 20140503
  17. OXYCODONE [Concomitant]
     Active Substance: OXYCODONE
     Indication: TOOTHACHE
     Dosage: UNK
     Route: 048
     Dates: start: 20140507
  18. LIDOCAINE. [Concomitant]
     Active Substance: LIDOCAINE
     Indication: TOOTHACHE
     Route: 061
     Dates: start: 20140505, end: 20140505

REACTIONS (11)
  - Necrotising fasciitis fungal [Recovered/Resolved]
  - Dysphagia [Unknown]
  - Neutropenia [Unknown]
  - Cellulitis [Unknown]
  - Abscess [Unknown]
  - Hypophagia [Unknown]
  - Pyrexia [Unknown]
  - Epiglottic oedema [Unknown]
  - Respiratory tract oedema [Recovered/Resolved]
  - Toothache [Unknown]
  - Pain in jaw [Unknown]

NARRATIVE: CASE EVENT DATE: 20140416
